FAERS Safety Report 7936644-X (Version None)
Quarter: 2011Q4

REPORT INFORMATION
  Report Type: 
  Country: None (occurrence: None)
  Receive Date: 20111123
  Receipt Date: 20111114
  Transmission Date: 20120403
  Serious: Yes (Death, Life-Threatening, Hospitalization)
  Sender: FDA-Public Use
  Company Number: JP-SANOFI-AVENTIS-2011SA058738

PATIENT
  Age: 75 Year
  Sex: Male
  Weight: 50.7 kg

DRUGS (21)
  1. CISPLATIN [Suspect]
     Route: 065
     Dates: start: 20091211, end: 20091211
  2. TS-1 [Suspect]
     Indication: GASTRIC CANCER
     Dosage: FREQUENCY: EVERY TWO WEEK
     Route: 048
     Dates: start: 20091204, end: 20100429
  3. TS-1 [Suspect]
     Dosage: FREQUENCY: EVERY TWO WEEK
     Route: 048
     Dates: start: 20091204, end: 20100429
  4. LEUCON [Concomitant]
     Indication: NEUTROPENIA
     Route: 048
     Dates: start: 20100104, end: 20100725
  5. DOXAZOSIN MESYLATE [Concomitant]
     Indication: HYPERTENSION
     Route: 048
     Dates: start: 20100513, end: 20100725
  6. GRANISETRON [Concomitant]
     Indication: PREMEDICATION
     Route: 065
  7. MAGNESIUM OXIDE [Concomitant]
     Indication: CONSTIPATION
     Route: 048
     Dates: start: 20100712, end: 20100719
  8. TAXOTERE [Suspect]
     Dosage: ROUTE: CORONARY VENOUS
     Route: 042
     Dates: start: 20100518, end: 20100628
  9. TAXOTERE [Suspect]
     Dosage: ROUTE: CORONARY VENOUS
     Route: 042
     Dates: start: 20100518, end: 20100628
  10. GIMERACIL/OTERACIL POTASSIUM/TEGAFUR [Suspect]
     Route: 065
     Dates: start: 20100201, end: 20100501
  11. AMLODIPINE [Concomitant]
     Indication: HYPERTENSION
     Dosage: DOSE: 5 (UNITS UNSPECIFIED)
     Route: 048
     Dates: start: 20100513, end: 20100627
  12. TAXOTERE [Suspect]
     Dosage: INFUSION
     Route: 065
     Dates: start: 20100201, end: 20100501
  13. TAXOTERE [Suspect]
     Dosage: INFUSION
     Route: 065
     Dates: start: 20100201, end: 20100501
  14. TAXOTERE [Suspect]
     Dosage: ROUTE: CORONARY VENOUS
     Route: 042
     Dates: start: 20100518, end: 20100628
  15. CISPLATIN [Suspect]
     Route: 065
     Dates: start: 20091211, end: 20091211
  16. GIMERACIL/OTERACIL POTASSIUM/TEGAFUR [Suspect]
     Route: 065
  17. TAXOTERE [Suspect]
     Dosage: ROUTE: CORONARY VENOUS
     Route: 042
     Dates: start: 20100518, end: 20100628
  18. GIMERACIL/OTERACIL POTASSIUM/TEGAFUR [Suspect]
     Route: 065
  19. GIMERACIL/OTERACIL POTASSIUM/TEGAFUR [Suspect]
     Route: 065
     Dates: start: 20100201, end: 20100501
  20. URINORM [Concomitant]
     Indication: HYPERURICAEMIA
     Route: 048
     Dates: start: 20091216, end: 20100518
  21. DEXAMETHASONE [Concomitant]
     Indication: PREMEDICATION
     Route: 065

REACTIONS (18)
  - DISSOCIATIVE FUGUE [None]
  - ABNORMAL BEHAVIOUR [None]
  - DEMENTIA [None]
  - INTERSTITIAL LUNG DISEASE [None]
  - MENTAL IMPAIRMENT [None]
  - COGNITIVE DISORDER [None]
  - DISORIENTATION [None]
  - HALLUCINATION, VISUAL [None]
  - PYREXIA [None]
  - COUGH [None]
  - MALAISE [None]
  - INSOMNIA [None]
  - DISEASE PROGRESSION [None]
  - DEMENTIA ALZHEIMER'S TYPE [None]
  - CEREBRAL ATROPHY [None]
  - MEMORY IMPAIRMENT [None]
  - DYSPHORIA [None]
  - DERMATOSIS [None]
